FAERS Safety Report 6191991-X (Version None)
Quarter: 2009Q2

REPORT INFORMATION
  Report Type: 
  Country: None (occurrence: None)
  Receive Date: 20090515
  Receipt Date: 20090510
  Transmission Date: 20091009
  Serious: Yes (Life-Threatening)
  Sender: FDA-Public Use
  Company Number: B0529772A

PATIENT
  Sex: Male

DRUGS (5)
  1. PAXIL [Suspect]
     Indication: DEPRESSION
     Dosage: 20MG PER DAY
     Route: 048
     Dates: start: 20080402
  2. MYSLEE [Suspect]
     Indication: INSOMNIA
     Route: 048
     Dates: start: 20080709
  3. RESLIN [Suspect]
     Indication: INSOMNIA
     Route: 048
     Dates: start: 20080709
  4. LENDORMIN [Concomitant]
     Indication: INSOMNIA
     Dosage: .25MG PER DAY
     Route: 048
     Dates: start: 20080402, end: 20080708
  5. DEPAS [Concomitant]
     Indication: NEUROSIS
     Dosage: .5MG PER DAY
     Route: 048
     Dates: start: 20080402, end: 20080708

REACTIONS (5)
  - ALTERED STATE OF CONSCIOUSNESS [None]
  - DISTURBANCE IN ATTENTION [None]
  - HYPERACUSIS [None]
  - INSOMNIA [None]
  - PALPITATIONS [None]
